FAERS Safety Report 5936156-9 (Version None)
Quarter: 2008Q4

REPORT INFORMATION
  Report Type: 
  Country: None (occurrence: None)
  Receive Date: 20081030
  Receipt Date: 20081022
  Transmission Date: 20090506
  Serious: Yes (Death)
  Sender: FDA-Public Use
  Company Number: GB-PFIZER INC-2008084851

PATIENT
  Sex: Male

DRUGS (11)
  1. PREDNISOLONE [Suspect]
     Dates: start: 20060201, end: 20060421
  2. CYCLOPHOSPHAMIDE [Suspect]
     Dates: start: 20060201, end: 20060421
  3. VINCRISTINE [Suspect]
     Dates: start: 20060201, end: 20060421
  4. CYTARABINE [Suspect]
  5. ETOPOSIDE [Suspect]
  6. METHOTREXATE [Suspect]
  7. ALL OTHER THERAPEUTIC PRODUCTS [Suspect]
     Dosage: TEXT:0.4MCI
     Dates: start: 20050407
  8. CARMUSTINE [Suspect]
  9. BEVACIZUMAB [Suspect]
     Dates: start: 20050331
  10. RITUXIMAB [Suspect]
     Dates: start: 20050331
  11. CHLORAMBUCIL [Suspect]
     Indication: NON-HODGKIN'S LYMPHOMA
     Dates: start: 20010901

REACTIONS (2)
  - ACUTE MYELOID LEUKAEMIA [None]
  - NEOPLASM MALIGNANT [None]
